FAERS Safety Report 24959079 (Version 1)
Quarter: 2025Q1

REPORT INFORMATION
  Report Type: Report from Study
  Country: US (occurrence: US)
  Receive Date: 20250212
  Receipt Date: 20250212
  Transmission Date: 20250408
  Serious: No
  Sender: BIOVITRUM
  Company Number: US-BIOVITRUM-2025-US-001940

PATIENT
  Age: 33 Year
  Sex: Female

DRUGS (1)
  1. KINERET [Suspect]
     Active Substance: ANAKINRA
     Indication: Pericarditis rheumatic
     Route: 058

REACTIONS (3)
  - Rash pruritic [Unknown]
  - Burning sensation [Unknown]
  - Intentional product misuse [Recovered/Resolved]
